FAERS Safety Report 15089663 (Version 1)
Quarter: 2018Q2

REPORT INFORMATION
  Report Type: Spontaneous
  Country: US (occurrence: US)
  Receive Date: 20180608
  Receipt Date: 20180608
  Transmission Date: 20180711
  Serious: No
  Sender: FDA-Public Use
  Company Number: None

PATIENT
  Age: 16 Year
  Sex: Female
  Weight: 58.5 kg

DRUGS (4)
  1. BENADRYL [Concomitant]
     Active Substance: DIPHENHYDRAMINE HYDROCHLORIDE
  2. CLOBETASON PROPIONATE TOPICAL SOLUTIOIN USP 0.05% AND CREAM [Concomitant]
  3. FLUOCINOLONE ACETONIDE TOPICAL OIL 0.01% [Suspect]
     Active Substance: FLUOCINOLONE ACETONIDE
     Indication: ECZEMA
     Dosage: ?          QUANTITY:3 GTT DROP(S);?
     Route: 061
     Dates: start: 20180605, end: 20180607
  4. TRIAMCINOLONE ACETONIDE CREAM USP 0.1% [Concomitant]
     Active Substance: TRIAMCINOLONE ACETONIDE

REACTIONS (1)
  - Hypersensitivity [None]

NARRATIVE: CASE EVENT DATE: 20180608
